FAERS Safety Report 16439783 (Version 1)
Quarter: 2019Q2

REPORT INFORMATION
  Report Type: Report from Study
  Country: US (occurrence: US)
  Receive Date: 20190617
  Receipt Date: 20190617
  Transmission Date: 20190711
  Serious: Yes (Hospitalization)
  Sender: FDA-Public Use
  Company Number: US-BAYER-2019-111839

PATIENT
  Age: 36 Year
  Sex: Male

DRUGS (1)
  1. STIVARGA [Suspect]
     Active Substance: REGORAFENIB
     Indication: COLORECTAL CANCER
     Dosage: 160 MG DAILY (21 DAYS, THEN 7 DAYS OFF)
     Route: 048
     Dates: start: 20190522, end: 2019

REACTIONS (2)
  - Gastrointestinal fistula [Unknown]
  - Malaise [Not Recovered/Not Resolved]
